FAERS Safety Report 17253171 (Version 3)
Quarter: 2020Q4

REPORT INFORMATION
  Report Type: Spontaneous
  Country: US (occurrence: US)
  Receive Date: 20200109
  Receipt Date: 20201016
  Transmission Date: 20210113
  Serious: No
  Sender: FDA-Public Use
  Company Number: US-SA-2020SA005576

PATIENT

DRUGS (3)
  1. FABRAZYME [Suspect]
     Active Substance: AGALSIDASE BETA
     Indication: FABRY^S DISEASE
     Dosage: 70 MG, QOW
     Route: 041
     Dates: start: 20151113
  2. FABRAZYME [Suspect]
     Active Substance: AGALSIDASE BETA
     Dosage: BIM
     Route: 041
     Dates: start: 202005
  3. FABRAZYME [Suspect]
     Active Substance: AGALSIDASE BETA
     Dosage: QM
     Route: 041

REACTIONS (2)
  - Product dose omission issue [Unknown]
  - Inappropriate schedule of product administration [Unknown]

NARRATIVE: CASE EVENT DATE: 20190101
